FAERS Safety Report 4771884-2 (Version None)
Quarter: 2005Q3

REPORT INFORMATION
  Report Type: 
  Country: None (occurrence: None)
  Receive Date: 20050916
  Receipt Date: 20050907
  Transmission Date: 20060218
  Serious: Yes (Death, Hospitalization)
  Sender: FDA-Public Use
  Company Number: US-JNJFOC-20050902464

PATIENT
  Age: 33 Year
  Sex: Female

DRUGS (6)
  1. CYCLOBENZAPRINE HCL [Suspect]
     Route: 048
  2. SERTRALINE HCL [Suspect]
     Route: 048
  3. DILTIAZEM [Suspect]
     Route: 048
  4. CHLORCYCLIZINE [Suspect]
     Route: 048
  5. METHAMPHETAMINE HCL [Suspect]
     Route: 048
  6. QUETIAPINE FUMARATE [Suspect]
     Route: 048

REACTIONS (10)
  - COMPLETED SUICIDE [None]
  - DRUG SCREEN POSITIVE [None]
  - DRUG TOXICITY [None]
  - HEART RATE INCREASED [None]
  - HEPATIC NECROSIS [None]
  - HEPATOMEGALY [None]
  - INTENTIONAL MISUSE [None]
  - MENTAL STATUS CHANGES [None]
  - METABOLIC ACIDOSIS [None]
  - MULTI-ORGAN FAILURE [None]
